FAERS Safety Report 7328478-4 (Version None)
Quarter: 2011Q1

REPORT INFORMATION
  Report Type: 
  Country: None (occurrence: None)
  Receive Date: 20110303
  Receipt Date: 20110302
  Transmission Date: 20110831
  Serious: Yes (Hospitalization)
  Sender: FDA-Public Use
  Company Number: JP-PFIZER INC-2011017881

PATIENT
  Age: 66 Year
  Sex: Male

DRUGS (2)
  1. BROACT [Concomitant]
     Indication: PNEUMONIA
     Dosage: 1 G, 2X/DAY
     Route: 042
     Dates: start: 20101209, end: 20101211
  2. VFEND [Suspect]
     Indication: BRONCHOPULMONARY ASPERGILLOSIS
     Dosage: 270 MG, 2X/DAY
     Route: 042
     Dates: start: 20101215, end: 20101222

REACTIONS (2)
  - MENTAL DISORDER [None]
  - CARDIAC FAILURE [None]
